FAERS Safety Report 5273826-2 (Version None)
Quarter: 2007Q1

REPORT INFORMATION
  Report Type: 
  Country: None (occurrence: None)
  Receive Date: 20061219
  Receipt Date: 20060918
  Transmission Date: 20070707
  Serious: Yes (Other)
  Sender: FDA-Public Use
  Company Number: US-JNJFOC-20060805497

PATIENT
  Age: 45 Year
  Sex: Female
  Weight: 93.441 kg

DRUGS (2)
  1. ORTHO EVRA [Suspect]
     Indication: CONTRACEPTION
     Dates: start: 20050101, end: 20060101
  2. ORTHO EVRA [Suspect]
     Indication: MENSTRUATION IRREGULAR
     Dates: start: 20050101, end: 20060101

REACTIONS (1)
  - CEREBROVASCULAR ACCIDENT [None]
